FAERS Safety Report 9745965 (Version 2)
Quarter: 2013Q4

REPORT INFORMATION
  Report Type: Not Available
  Country: FR (occurrence: FR)
  Receive Date: 20131211
  Receipt Date: 20131216
  Transmission Date: 20140711
  Serious: Yes (Hospitalization)
  Sender: FDA-Public Use
  Company Number: FR-BEH-2013039384

PATIENT
  Age: 83 Year
  Sex: Female

DRUGS (11)
  1. PRIVIGEN [Suspect]
     Dosage: 0.4 G/KG/D
     Route: 042
     Dates: start: 20130222, end: 20130226
  2. BISOPROLOL [Concomitant]
  3. LEVOTHYROX [Concomitant]
  4. FORTZAAR [Concomitant]
  5. PRAVASTATINE [Concomitant]
  6. ZYLORIC [Concomitant]
  7. FUROSEMIDE [Concomitant]
  8. SINTROM [Concomitant]
  9. DIFFU K [Concomitant]
  10. METFORMINE [Concomitant]
  11. DOLIPRANE [Concomitant]

REACTIONS (1)
  - Acute pulmonary oedema [Recovered/Resolved]
